FAERS Safety Report 23975421 (Version 3)
Quarter: 2025Q1

REPORT INFORMATION
  Report Type: Spontaneous
  Country: US (occurrence: US)
  Receive Date: 20240614
  Receipt Date: 20250205
  Transmission Date: 20250409
  Serious: No
  Sender: GLAXOSMITHKLINE
  Company Number: US-GSKCCFUS-Case-02028746_AE-112517

PATIENT
  Age: 71 Year
  Sex: Male

DRUGS (1)
  1. NUCALA [Suspect]
     Active Substance: MEPOLIZUMAB
     Indication: Product used for unknown indication

REACTIONS (5)
  - Wrong technique in device usage process [Not Recovered/Not Resolved]
  - Inappropriate schedule of product administration [Not Recovered/Not Resolved]
  - Device dislocation [Unknown]
  - Drug dose omission by device [Unknown]
  - Product complaint [Unknown]

NARRATIVE: CASE EVENT DATE: 20240607
